FAERS Safety Report 14918782 (Version 1)
Quarter: 2018Q2

REPORT INFORMATION
  Report Type: Spontaneous
  Country: US (occurrence: US)
  Receive Date: 20180521
  Receipt Date: 20180521
  Transmission Date: 20180711
  Serious: No
  Sender: FDA-Public Use
  Company Number: US-PFIZER INC-2018206571

PATIENT
  Age: 45 Year
  Sex: Female
  Weight: 77 kg

DRUGS (1)
  1. MORPHINE SULFATE. [Suspect]
     Active Substance: MORPHINE SULFATE
     Indication: PROCEDURAL PAIN
     Dosage: UNK
     Dates: start: 1990, end: 1990

REACTIONS (4)
  - Urticaria [Unknown]
  - Hypersensitivity [Recovered/Resolved]
  - Blood pressure increased [Unknown]
  - Pruritus [Unknown]

NARRATIVE: CASE EVENT DATE: 1990
